FAERS Safety Report 7021125-0 (Version None)
Quarter: 2010Q3

REPORT INFORMATION
  Report Type: 
  Country: None (occurrence: None)
  Receive Date: 20100929
  Receipt Date: 20100927
  Transmission Date: 20110219
  Serious: Yes (Death)
  Sender: FDA-Public Use
  Company Number: PHHY2010CA63662

PATIENT
  Sex: Male

DRUGS (10)
  1. ACLASTA [Suspect]
     Indication: OSTEOPOROSIS
     Dosage: ONCE A YEAR
     Route: 042
     Dates: start: 20090101
  2. COUMADIN [Concomitant]
  3. VASOTEC [Concomitant]
  4. ZOCOR [Concomitant]
  5. LASIX [Concomitant]
  6. PANTOLOC [Concomitant]
  7. ALLOPURINOL [Concomitant]
     Dosage: UNK
  8. COLCHICINE [Concomitant]
  9. CALCIUM [Concomitant]
  10. VITAMIN D [Concomitant]

REACTIONS (1)
  - MYOCARDIAL INFARCTION [None]
